FAERS Safety Report 22377127 (Version 1)
Quarter: 2023Q2

REPORT INFORMATION
  Report Type: Spontaneous
  Country: US (occurrence: None)
  Receive Date: 20230529
  Receipt Date: 20230529
  Transmission Date: 20230721
  Serious: No
  Sender: FDA-Public Use
  Company Number: 2023A121156

PATIENT
  Age: 25633 Day

DRUGS (1)
  1. FASENRA [Suspect]
     Active Substance: BENRALIZUMAB
     Route: 058

REACTIONS (5)
  - Headache [Not Recovered/Not Resolved]
  - Malaise [Unknown]
  - Pharyngeal swelling [Unknown]
  - Dysphagia [Unknown]
  - Product use issue [Unknown]

NARRATIVE: CASE EVENT DATE: 20230519
